FAERS Safety Report 4569013-3 (Version None)
Quarter: 2005Q1

REPORT INFORMATION
  Report Type: 
  Country: None (occurrence: None)
  Receive Date: 20050203
  Receipt Date: 20050111
  Transmission Date: 20050727
  Serious: Yes (Death, Hospitalization)
  Sender: FDA-Public Use
  Company Number: 200510265US

PATIENT
  Age: 44 Year
  Sex: Male

DRUGS (2)
  1. KETEK [Suspect]
     Dosage: DOSE: UNK
  2. LEVAQUIN [Suspect]
     Dosage: DOSE: UNK

REACTIONS (6)
  - ALANINE AMINOTRANSFERASE INCREASED [None]
  - ASPARTATE AMINOTRANSFERASE INCREASED [None]
  - BRAIN ABSCESS [None]
  - CHILLS [None]
  - ENDOCARDITIS [None]
  - PYREXIA [None]
